FAERS Safety Report 7759806-3 (Version None)
Quarter: 2011Q3

REPORT INFORMATION
  Report Type: 
  Country: None (occurrence: None)
  Receive Date: 20110919
  Receipt Date: 20110909
  Transmission Date: 20111222
  Serious: Yes (Other)
  Sender: FDA-Public Use
  Company Number: FR-ASTRAZENECA-2011SE08411

PATIENT
  Age: 600 Month
  Sex: Female

DRUGS (3)
  1. ARIMIDEX [Suspect]
     Indication: BREAST CANCER
     Route: 048
     Dates: start: 20100119, end: 20100901
  2. OMEPRAZOLE [Concomitant]
  3. LEXOMIL [Concomitant]

REACTIONS (1)
  - LICHEN PLANUS [None]
